FAERS Safety Report 7512035-0 (Version None)
Quarter: 2011Q2

REPORT INFORMATION
  Report Type: 
  Country: None (occurrence: None)
  Receive Date: 20110531
  Receipt Date: 20110510
  Transmission Date: 20111010
  Serious: No
  Sender: FDA-Public Use
  Company Number: US-B.I. PHARMACEUTICALS,INC./RIDGEFIELD-2011-BP-03408BP

PATIENT
  Sex: Female
  Weight: 62.14 kg

DRUGS (8)
  1. COMBIVENT [Suspect]
     Indication: BRONCHITIS
     Route: 055
     Dates: start: 20110131, end: 20110201
  2. COMBIVENT [Suspect]
     Indication: DYSPNOEA
  3. COMBIVENT [Suspect]
     Indication: INFLUENZA
  4. ZOMIG [Concomitant]
  5. THYROID TAB [Concomitant]
     Indication: HYPOTHYROIDISM
     Dosage: 120 MG
     Route: 048
  6. EXCEDRIN (MIGRAINE) [Concomitant]
  7. COMBIVENT [Suspect]
  8. COMBIVENT [Suspect]

REACTIONS (2)
  - NASAL CONGESTION [None]
  - EPISTAXIS [None]
